FAERS Safety Report 6136480-3 (Version None)
Quarter: 2009Q1

REPORT INFORMATION
  Report Type: 
  Country: None (occurrence: None)
  Receive Date: 20090217
  Receipt Date: 20080602
  Transmission Date: 20090719
  Serious: No
  Sender: FDA-Public Use
  Company Number: AEUSA200800128

PATIENT
  Age: 38 Year
  Sex: Male

DRUGS (1)
  1. PROLASTIN [Suspect]
     Indication: ALPHA-1 ANTI-TRYPSIN DEFICIENCY
     Dosage: QW; IV
     Route: 042
     Dates: start: 20080201

REACTIONS (2)
  - BLOOD PRESSURE INCREASED [None]
  - INFLUENZA LIKE ILLNESS [None]
